FAERS Safety Report 21500426 (Version 1)
Quarter: 2022Q4

REPORT INFORMATION
  Report Type: Report from Study
  Country: US (occurrence: US)
  Receive Date: 20221025
  Receipt Date: 20221025
  Transmission Date: 20230113
  Serious: No
  Sender: FDA-Public Use
  Company Number: US-ABBVIE-4165639

PATIENT
  Sex: Female

DRUGS (3)
  1. VENCLEXTA [Suspect]
     Active Substance: VENETOCLAX
     Indication: Neoplasm malignant
     Dosage: 200 MILLIGRAM/2 TABLETS EVERYDAY FOR TWO WEEKS?STRENGTH- 100 MILLIGRAM
     Route: 048
  2. VENCLEXTA [Suspect]
     Active Substance: VENETOCLAX
     Indication: Neoplasm malignant
     Dosage: TIME INTERVAL: 0.33333333 DAYS: 300 MILLIGRAM EVERYDAY FOR TWO WEEKS/3 TABLETS?STRENGTH- 100 MILL...
     Route: 048
  3. VENCLEXTA [Suspect]
     Active Substance: VENETOCLAX
     Indication: Neoplasm malignant
     Dosage: 400 MILLIGRAM EVERYDAY THEREAFTER/4 TABLETS?STRENGTH- 100 MILLIGRAM
     Route: 048

REACTIONS (1)
  - Feeling abnormal [Unknown]
